FAERS Safety Report 13178474 (Version 1)
Quarter: 2017Q1

REPORT INFORMATION
  Report Type: Spontaneous
  Country: US (occurrence: US)
  Receive Date: 20170202
  Receipt Date: 20170202
  Transmission Date: 20170428
  Serious: Yes (Death, Other)
  Sender: FDA-Public Use
  Company Number: US-SCIEGEN PHARMACEUTICALS INC-2017SCILIT00022

PATIENT
  Sex: Male

DRUGS (1)
  1. ATORVASTATIN CALCIUM. [Suspect]
     Active Substance: ATORVASTATIN CALCIUM
     Indication: TYPE IIA HYPERLIPIDAEMIA
     Dosage: 20 MG, UNK

REACTIONS (10)
  - Nightmare [Unknown]
  - Feeling abnormal [Unknown]
  - Somnambulism [Unknown]
  - Intentional self-injury [Fatal]
  - Agitation [Unknown]
  - Homicidal ideation [Unknown]
  - Anxiety [Unknown]
  - Completed suicide [Fatal]
  - Attention deficit/hyperactivity disorder [Unknown]
  - Depression [Unknown]
